FAERS Safety Report 8492619-6 (Version None)
Quarter: 2012Q3

REPORT INFORMATION
  Report Type: 
  Country: None (occurrence: None)
  Receive Date: 20120706
  Receipt Date: 20120703
  Transmission Date: 20120928
  Serious: Yes (Other)
  Sender: FDA-Public Use
  Company Number: JP-PFIZER INC-2012158837

PATIENT
  Age: 45 Year
  Sex: Female

DRUGS (2)
  1. ZOLOFT [Suspect]
     Dosage: 25 MG, UNK
     Route: 048
     Dates: start: 20120101, end: 20120101
  2. ZOLOFT [Suspect]
     Dosage: 50 MG, UNK
     Route: 048
     Dates: start: 20120101, end: 20120101

REACTIONS (2)
  - DYSARTHRIA [None]
  - DYSKINESIA [None]
